FAERS Safety Report 6780152-9 (Version None)
Quarter: 2010Q2

REPORT INFORMATION
  Report Type: 
  Country: None (occurrence: None)
  Receive Date: 20100618
  Receipt Date: 20100609
  Transmission Date: 20101027
  Serious: Yes (Hospitalization)
  Sender: FDA-Public Use
  Company Number: CH-WYE-H15676610

PATIENT
  Age: 80 Year
  Sex: Female

DRUGS (6)
  1. CORDARONE [Suspect]
     Indication: EXTRASYSTOLES
     Route: 048
     Dates: start: 20090701, end: 20091021
  2. TORSEMIDE [Concomitant]
     Dosage: NOT PROVIDED
  3. ACETYLSALICYLIC ACID [Concomitant]
     Dosage: NOT PROVIDED
  4. PLAVIX [Concomitant]
     Dosage: NOT PROVIDED
  5. CARVEDILOL [Interacting]
     Route: 048
     Dates: end: 20091021
  6. SPIRONOLACTONE [Concomitant]
     Dosage: NOT PROVIDED

REACTIONS (2)
  - DRUG INTERACTION [None]
  - SINUS BRADYCARDIA [None]
